FAERS Safety Report 10540899 (Version 1)
Quarter: 2014Q4

REPORT INFORMATION
  Report Type: Spontaneous
  Country: US (occurrence: None)
  Receive Date: 20141010
  Receipt Date: 20141010
  Transmission Date: 20150529
  Serious: No
  Sender: FDA-Public Use
  Company Number: 163-POMAL-14062241

PATIENT
  Age: 69 Year
  Sex: Female

DRUGS (22)
  1. DECADRON [Concomitant]
     Active Substance: DEXAMETHASONE
  2. MILK OF MAGNESIA (MAGNESIUM HYDROXIDE) [Concomitant]
  3. ZYRTEC [Concomitant]
     Active Substance: CETIRIZINE HYDROCHLORIDE
  4. LEVOTHYROID  (LEVOTHYROXINE SODIUM) [Concomitant]
  5. COMPAZINE [Concomitant]
     Active Substance: PROCHLORPERAZINE MALEATE
  6. LASIX [Concomitant]
     Active Substance: FUROSEMIDE
  7. ULTRAM (TRAMADOL HYDROCHLORIDE) [Concomitant]
     Active Substance: TRAMADOL HYDROCHLORIDE
  8. ZYLOPRIM (ALLOPURINOL) [Concomitant]
  9. GLUCOTROL [Concomitant]
     Active Substance: GLIPIZIDE
  10. THERAGRAN [Concomitant]
     Active Substance: VITAMINS
  11. COUMADIN [Concomitant]
     Active Substance: WARFARIN SODIUM
  12. POMALYST [Suspect]
     Active Substance: POMALIDOMIDE
     Indication: PLASMA CELL MYELOMA
     Dosage: 4 MG, 21 IN 21 D, PO
     Route: 048
     Dates: start: 20140731
  13. SENOKOT-S [Concomitant]
     Active Substance: DOCUSATE SODIUM\SENNOSIDES
  14. NEURONTIN [Concomitant]
     Active Substance: GABAPENTIN
  15. LACTOBACILLUS (LACTOBACILLUS ACIDOPHILUS) [Concomitant]
  16. IMODIUM [Concomitant]
     Active Substance: LOPERAMIDE HYDROCHLORIDE
  17. DITROPAN (OXYBUTYNIN) [Concomitant]
  18. CORTISONE [Concomitant]
     Active Substance: CORTISONE\HYDROCORTISONE
  19. COLCHICINE. [Concomitant]
     Active Substance: COLCHICINE
  20. MAG-OX (MAGNESIUM OXIDE) [Concomitant]
  21. K-DUR [Concomitant]
     Active Substance: POTASSIUM CHLORIDE
  22. PRILOSEC (OMEPRAZOLE) [Concomitant]
     Active Substance: OMEPRAZOLE MAGNESIUM

REACTIONS (4)
  - Dysgeusia [None]
  - Fatigue [None]
  - Dry mouth [None]
  - Constipation [None]

NARRATIVE: CASE EVENT DATE: 20140531
